FAERS Safety Report 8110487-9 (Version None)
Quarter: 2012Q1

REPORT INFORMATION
  Report Type: 
  Country: None (occurrence: None)
  Receive Date: 20120202
  Receipt Date: 20120131
  Transmission Date: 20120608
  Serious: Yes (Death, Life-Threatening, Hospitalization, Disabling, Other)
  Sender: FDA-Public Use
  Company Number: DE-ABBOTT-11P-062-0845559-00

PATIENT
  Sex: Female

DRUGS (21)
  1. PALLODON [Concomitant]
     Indication: RHEUMATOID ARTHRITIS
     Dates: start: 20110517
  2. FEXOFENADIN [Concomitant]
     Indication: RASH
  3. PANTOPRAZOLE [Concomitant]
     Indication: PRODUCT USED FOR UNKNOWN INDICATION
     Dates: start: 20110517
  4. METHOTREXATE [Concomitant]
     Indication: RHEUMATOID ARTHRITIS
     Dates: start: 20060901, end: 20070401
  5. METHOTREXATE [Concomitant]
     Dates: start: 20081101
  6. HUMIRA [Suspect]
     Indication: RHEUMATOID ARTHRITIS
     Dates: start: 20060701, end: 20081101
  7. FAUSTAN [Concomitant]
     Indication: PRODUCT USED FOR UNKNOWN INDICATION
     Route: 048
  8. ACETAMINOPHEN [Concomitant]
     Indication: PRODUCT USED FOR UNKNOWN INDICATION
     Dates: start: 20110517
  9. FLUCONAZOLE [Concomitant]
     Indication: PRODUCT USED FOR UNKNOWN INDICATION
     Dates: start: 20110517, end: 20110522
  10. SULTAMICILLIN [Concomitant]
     Indication: PRODUCT USED FOR UNKNOWN INDICATION
     Route: 048
     Dates: start: 20110517, end: 20110520
  11. ENOXAPARIN SODIUM [Concomitant]
     Indication: PRODUCT USED FOR UNKNOWN INDICATION
     Dosage: 0.4 ONCE PER DAY
     Route: 058
     Dates: start: 20110517
  12. HUMIRA [Suspect]
     Route: 058
     Dates: start: 20100615, end: 20110404
  13. TETRAZEPAM [Concomitant]
     Indication: RHEUMATOID ARTHRITIS
  14. SODERM [Concomitant]
     Indication: PRODUCT USED FOR UNKNOWN INDICATION
  15. FUROSEMIDE [Concomitant]
     Indication: ADVERSE DRUG REACTION
  16. CALCIUM CARBONATE [Concomitant]
     Indication: PRODUCT USED FOR UNKNOWN INDICATION
     Dates: start: 20110517
  17. PREDNISOLONE [Concomitant]
     Indication: RHEUMATOID ARTHRITIS
  18. PREDNISONE TAB [Concomitant]
     Indication: PRODUCT USED FOR UNKNOWN INDICATION
  19. METOPROLOL [Concomitant]
     Indication: TACHYCARDIA
  20. ENBREL [Concomitant]
     Indication: RHEUMATOID ARTHRITIS
     Dates: start: 20081101, end: 20081201
  21. AMPHO MORONAL LT [Concomitant]
     Indication: PRODUCT USED FOR UNKNOWN INDICATION
     Dates: start: 20110517

REACTIONS (20)
  - RASH MACULO-PAPULAR [None]
  - SEPTIC SHOCK [None]
  - GENERAL PHYSICAL HEALTH DETERIORATION [None]
  - TACHYCARDIA [None]
  - ACUTE RESPIRATORY DISTRESS SYNDROME [None]
  - ABDOMINAL PAIN UPPER [None]
  - LEUKOPENIA [None]
  - URINARY TRACT INFECTION [None]
  - AGRANULOCYTOSIS [None]
  - INFLAMMATORY MARKER INCREASED [None]
  - LACTIC ACIDOSIS [None]
  - JOINT ANKYLOSIS [None]
  - HYPOKALAEMIA [None]
  - CENTRAL NERVOUS SYSTEM NECROSIS [None]
  - STREPTOCOCCAL SEPSIS [None]
  - MULTI-ORGAN FAILURE [None]
  - DYSPHAGIA [None]
  - HYPOTENSION [None]
  - SUPRAVENTRICULAR TACHYCARDIA [None]
  - DRUG INEFFECTIVE [None]
